FAERS Safety Report 13190121 (Version 2)
Quarter: 2017Q1

REPORT INFORMATION
  Report Type: Report from Study
  Country: US (occurrence: US)
  Receive Date: 20170206
  Receipt Date: 20170224
  Transmission Date: 20170428
  Serious: Yes (Hospitalization)
  Sender: FDA-Public Use
  Company Number: US-JNJFOC-20161224771

PATIENT
  Age: 70 Year
  Sex: Male

DRUGS (16)
  1. LIPITOR [Concomitant]
     Active Substance: ATORVASTATIN CALCIUM
     Route: 048
  2. ASPIRIN. [Concomitant]
     Active Substance: ASPIRIN
     Route: 048
  3. ALDACTONE [Concomitant]
     Active Substance: SPIRONOLACTONE
     Route: 048
  4. GLUCOSAMINE COMPLEX [Concomitant]
     Active Substance: GLUCOSAMINE\GLUCOSAMINE SULFATE
     Dosage: DOSE: 30 ML/ML
     Route: 048
  5. CELEBREX [Concomitant]
     Active Substance: CELECOXIB
     Dosage: WITH FOOD
     Route: 048
  6. PREDNISONE. [Concomitant]
     Active Substance: PREDNISONE
     Route: 048
  7. XARELTO [Suspect]
     Active Substance: RIVAROXABAN
     Indication: ATRIAL FIBRILLATION
     Route: 048
     Dates: start: 20151106
  8. COREG [Concomitant]
     Active Substance: CARVEDILOL
     Route: 048
  9. GLUCOTROL [Concomitant]
     Active Substance: GLIPIZIDE
     Route: 048
  10. COZAAR [Concomitant]
     Active Substance: LOSARTAN POTASSIUM
     Route: 048
  11. COZAAR [Concomitant]
     Active Substance: LOSARTAN POTASSIUM
     Route: 048
  12. DOSTINEX [Concomitant]
     Active Substance: CABERGOLINE
     Route: 048
  13. XARELTO [Suspect]
     Active Substance: RIVAROXABAN
     Indication: CEREBROVASCULAR ACCIDENT PROPHYLAXIS
     Route: 048
     Dates: start: 20151106
  14. TYLENOL [Concomitant]
     Active Substance: ACETAMINOPHEN
     Indication: PAIN
     Dosage: AS NEEDED
     Route: 048
  15. BUMEX [Concomitant]
     Active Substance: BUMETANIDE
     Route: 048
  16. ALDACTONE [Concomitant]
     Active Substance: SPIRONOLACTONE
     Route: 048

REACTIONS (3)
  - Cardiogenic shock [Recovered/Resolved]
  - Hypotension [Recovered/Resolved]
  - Transient ischaemic attack [Recovered/Resolved]

NARRATIVE: CASE EVENT DATE: 20160130
